FAERS Safety Report 13793340 (Version 2)
Quarter: 2018Q4

REPORT INFORMATION
  Report Type: Report from Study
  Country: None (occurrence: US)
  Receive Date: 20170726
  Receipt Date: 20181012
  Transmission Date: 20190204
  Serious: Yes (Hospitalization)
  Sender: FDA-Public Use
  Company Number: US-ABBVIE-17K-163-2004657-00

PATIENT
  Age: 47 Year
  Sex: Female
  Weight: 45.4 kg

DRUGS (2)
  1. HUMIRA [Suspect]
     Active Substance: ADALIMUMAB
     Indication: CROHN^S DISEASE
     Route: 058
     Dates: start: 2012, end: 20170420
  2. HUMIRA [Suspect]
     Active Substance: ADALIMUMAB
     Route: 058
     Dates: start: 20170608

REACTIONS (20)
  - Joint swelling [Recovering/Resolving]
  - Staphylococcal infection [Recovered/Resolved]
  - Rectal prolapse [Not Recovered/Not Resolved]
  - Systemic infection [Recovering/Resolving]
  - Oropharyngeal blistering [Recovered/Resolved]
  - Oral mucosal blistering [Recovered/Resolved]
  - Femoral hernia [Not Recovered/Not Resolved]
  - Immunodeficiency [Recovered/Resolved]
  - Carotid artery disease [Not Recovered/Not Resolved]
  - Dysphagia [Recovered/Resolved]
  - Crohn^s disease [Recovering/Resolving]
  - Pre-existing condition improved [Recovered/Resolved]
  - Pneumonia [Unknown]
  - Cerebrovascular accident [Recovered/Resolved]
  - Hypophagia [Recovered/Resolved]
  - Hiatus hernia [Not Recovered/Not Resolved]
  - Inguinal hernia [Not Recovered/Not Resolved]
  - Therapeutic response unexpected [Recovered/Resolved]
  - Lip blister [Recovered/Resolved]
  - Fibromuscular dysplasia [Not Recovered/Not Resolved]

NARRATIVE: CASE EVENT DATE: 2014
